FAERS Safety Report 14562244 (Version 1)
Quarter: 2018Q1

REPORT INFORMATION
  Report Type: Spontaneous
  Country: JP (occurrence: JP)
  Receive Date: 20180222
  Receipt Date: 20180222
  Transmission Date: 20180509
  Serious: Yes (Hospitalization)
  Sender: FDA-Public Use
  Company Number: US-ASTRAZENECA-2017SF32850

PATIENT
  Age: 22 Month
  Sex: Male
  Weight: 8.5 kg

DRUGS (5)
  1. SYNAGIS [Suspect]
     Active Substance: PALIVIZUMAB
     Indication: ANTIVIRAL PROPHYLAXIS
     Dosage: 150.0MG ONCE/SINGLE ADMINISTRATION
     Route: 030
     Dates: start: 20171003, end: 20171003
  2. SYNAGIS [Suspect]
     Active Substance: PALIVIZUMAB
     Indication: ANTIVIRAL PROPHYLAXIS
     Dosage: 150.0MG ONCE/SINGLE ADMINISTRATION
     Route: 030
     Dates: start: 20171102, end: 20171102
  3. SYNAGIS [Suspect]
     Active Substance: PALIVIZUMAB
     Indication: ANTIVIRAL PROPHYLAXIS
     Dosage: ONCE/SINGLE ADMINISTRATION
     Route: 030
  4. SYNAGIS [Suspect]
     Active Substance: PALIVIZUMAB
     Indication: ANTIVIRAL PROPHYLAXIS
     Dosage: 150.0MG ONCE/SINGLE ADMINISTRATION
     Route: 030
     Dates: start: 20170907, end: 20170907
  5. SYNAGIS [Suspect]
     Active Substance: PALIVIZUMAB
     Indication: ANTIVIRAL PROPHYLAXIS
     Route: 030
     Dates: start: 20160916, end: 20170217

REACTIONS (5)
  - Asthma [Recovering/Resolving]
  - General physical health deterioration [Recovering/Resolving]
  - Nasopharyngitis [Recovering/Resolving]
  - Respiratory syncytial virus infection [Recovered/Resolved]
  - Malaise [Recovering/Resolving]

NARRATIVE: CASE EVENT DATE: 2017
